FAERS Safety Report 26125850 (Version 2)
Quarter: 2025Q4

REPORT INFORMATION
  Report Type: Spontaneous
  Country: US (occurrence: US)
  Receive Date: 20251205
  Receipt Date: 20251205
  Transmission Date: 20260118
  Serious: No
  Sender: NOVO NORDISK
  Company Number: US-NOVOPROD-1338843

PATIENT
  Sex: Female

DRUGS (2)
  1. NOVOLIN N [Suspect]
     Active Substance: INSULIN HUMAN
     Indication: Type 2 diabetes mellitus
     Dosage: UNK
     Route: 058
  2. NOVOLIN R [Suspect]
     Active Substance: INSULIN HUMAN
     Indication: Type 2 diabetes mellitus
     Dosage: UNK
     Route: 058

REACTIONS (6)
  - Rash [Recovered/Resolved]
  - Pruritus [Recovered/Resolved]
  - Dizziness [Not Recovered/Not Resolved]
  - Peripheral swelling [Recovered/Resolved]
  - Blood glucose increased [Recovered/Resolved]
  - Product dispensing error [Unknown]
